FAERS Safety Report 5391057-2 (Version None)
Quarter: 2007Q3

REPORT INFORMATION
  Report Type: 
  Country: None (occurrence: None)
  Receive Date: 20070718
  Receipt Date: 20070713
  Transmission Date: 20080115
  Serious: Yes (Death, Other)
  Sender: FDA-Public Use
  Company Number: 38662

PATIENT
  Age: 50 Year
  Sex: Male

DRUGS (2)
  1. HALOPERIDOL DECANOATE [Suspect]
     Indication: SCHIZOPHRENIA
     Dosage: 1200MG/IV (TOTAL FOR BOTH LOTS)
     Route: 042
     Dates: start: 20070702
  2. HALOPERIDOL DECANOATE [Suspect]

REACTIONS (1)
  - DEATH [None]
